FAERS Safety Report 4830203-3 (Version None)
Quarter: 2005Q4

REPORT INFORMATION
  Report Type: 
  Country: None (occurrence: None)
  Receive Date: 20051117
  Receipt Date: 20051104
  Transmission Date: 20060501
  Serious: Yes (Other)
  Sender: FDA-Public Use
  Company Number: US-MERCK-0511USA00829

PATIENT
  Age: 46 Year
  Sex: Female
  Weight: 129 kg

DRUGS (12)
  1. VIOXX [Suspect]
     Route: 048
     Dates: start: 20031211, end: 20040906
  2. TERAZOL 7 [Concomitant]
     Route: 065
  3. [THERAPY UNSPECIFIED] [Concomitant]
     Route: 065
  4. GLYBURIDE [Concomitant]
     Route: 065
  5. LORANIL (LORATADINE) [Concomitant]
     Route: 065
  6. HYDROCHLOROTHIAZIDE [Concomitant]
     Route: 065
  7. FOSINOPRIL SODIUM [Concomitant]
     Route: 065
  8. ACTOS [Concomitant]
     Route: 065
  9. ALBUTEROL [Concomitant]
     Route: 065
  10. MONOPRIL [Concomitant]
     Route: 065
  11. PREVACID [Concomitant]
     Route: 065
  12. AVELOX [Concomitant]
     Route: 065

REACTIONS (9)
  - CHEST PAIN [None]
  - COUGH [None]
  - DIABETES MELLITUS INADEQUATE CONTROL [None]
  - DIZZINESS [None]
  - HEADACHE [None]
  - HYPERTENSION [None]
  - MYOCARDIAL INFARCTION [None]
  - PAIN [None]
  - PNEUMONIA [None]
